FAERS Safety Report 24640758 (Version 2)
Quarter: 2024Q4

REPORT INFORMATION
  Report Type: Spontaneous
  Country: US (occurrence: US)
  Receive Date: 20241120
  Receipt Date: 20241219
  Transmission Date: 20250115
  Serious: Yes (Hospitalization, Other)
  Sender: TEVA
  Company Number: US-TEVA-VS-3265611

PATIENT
  Age: 79 Year
  Sex: Female

DRUGS (12)
  1. AMIODARONE [Suspect]
     Active Substance: AMIODARONE
     Indication: Atrial fibrillation
     Route: 065
  2. VERAPAMIL [Concomitant]
     Active Substance: VERAPAMIL HYDROCHLORIDE
     Indication: Atrial fibrillation
     Route: 065
  3. VERAPAMIL [Concomitant]
     Active Substance: VERAPAMIL HYDROCHLORIDE
     Indication: Atrial fibrillation
     Route: 065
  4. SPIRONOLACTONE [Concomitant]
     Active Substance: SPIRONOLACTONE
     Indication: Cardiac failure
  5. FLECAINIDE [Suspect]
     Active Substance: FLECAINIDE
     Indication: Atrial fibrillation
     Route: 048
  6. FLECAINIDE [Suspect]
     Active Substance: FLECAINIDE
     Indication: Atrial fibrillation
     Route: 048
  7. FLECAINIDE [Suspect]
     Active Substance: FLECAINIDE
     Indication: Atrial fibrillation
     Route: 048
  8. ALBUTEROL [Suspect]
     Active Substance: ALBUTEROL
     Indication: Asthma
     Route: 065
  9. METOPROLOL [Concomitant]
     Active Substance: METOPROLOL
     Indication: Atrial fibrillation
  10. EMPAGLIFLOZIN [Concomitant]
     Active Substance: EMPAGLIFLOZIN
     Indication: Cardiac failure
     Route: 065
  11. LOSARTAN [Concomitant]
     Active Substance: LOSARTAN
     Indication: Cardiac failure
  12. DIGOXIN [Concomitant]
     Active Substance: DIGOXIN
     Indication: Atrial fibrillation

REACTIONS (8)
  - Toxicity to various agents [Recovering/Resolving]
  - Intentional product misuse [Unknown]
  - Dyspnoea [Recovering/Resolving]
  - Nausea [Recovering/Resolving]
  - Accidental overdose [Unknown]
  - Vomiting [Recovering/Resolving]
  - Asthenia [Recovering/Resolving]
  - Drug ineffective [Unknown]
